FAERS Safety Report 20601751 (Version 2)
Quarter: 2022Q1

REPORT INFORMATION
  Report Type: Spontaneous
  Country: US (occurrence: US)
  Receive Date: 20220316
  Receipt Date: 20220324
  Transmission Date: 20220424
  Serious: Yes (Hospitalization)
  Sender: FDA-Public Use
  Company Number: US-TORRENT-00011787

PATIENT
  Age: 26 Year
  Sex: Male

DRUGS (2)
  1. ARIPIPRAZOLE [Suspect]
     Active Substance: ARIPIPRAZOLE
     Indication: Product used for unknown indication
     Dosage: 5 MG
  2. RISPERIDONE [Suspect]
     Active Substance: RISPERIDONE
     Indication: Schizophrenia
     Dosage: 2 MG AT NIGHT
     Route: 065

REACTIONS (4)
  - Psychotic disorder [Recovered/Resolved]
  - Catatonia [Recovered/Resolved]
  - Sexual dysfunction [Unknown]
  - Gynaecomastia [Unknown]
